FAERS Safety Report 22057824 (Version 1)
Quarter: 2023Q1

REPORT INFORMATION
  Report Type: Report from Study
  Country: US (occurrence: US)
  Receive Date: 20230303
  Receipt Date: 20230303
  Transmission Date: 20230417
  Serious: No
  Sender: FDA-Public Use
  Company Number: US-ORG100014127-2022000580

PATIENT
  Age: 47 Year
  Sex: Male

DRUGS (6)
  1. METOPIRONE [Suspect]
     Active Substance: METYRAPONE
     Indication: Ectopic ACTH syndrome
     Dosage: 01 CAPSULE THREE TIMES DAILY
     Route: 048
     Dates: start: 20210810
  2. METOPIRONE [Suspect]
     Active Substance: METYRAPONE
     Indication: Ectopic ACTH syndrome
     Dosage: 02 CAPSULES THREE TIMES DAILY
     Route: 048
  3. ISTURISA TAB 1MG [Concomitant]
     Indication: Product used for unknown indication
  4. OCTREOTIDE [Concomitant]
     Active Substance: OCTREOTIDE
     Indication: Product used for unknown indication
  5. CAPECITABINE [Concomitant]
     Active Substance: CAPECITABINE
     Indication: Product used for unknown indication
  6. TEMOZOLOMIDE [Concomitant]
     Active Substance: TEMOZOLOMIDE
     Indication: Product used for unknown indication

REACTIONS (2)
  - Dizziness [Not Recovered/Not Resolved]
  - Off label use [Not Recovered/Not Resolved]

NARRATIVE: CASE EVENT DATE: 20210810
